FAERS Safety Report 5615879-5 (Version None)
Quarter: 2008Q1

REPORT INFORMATION
  Report Type: 
  Country: None (occurrence: None)
  Receive Date: 20080206
  Receipt Date: 20080125
  Transmission Date: 20080703
  Serious: Yes (Hospitalization)
  Sender: FDA-Public Use
  Company Number: SK-AMGEN-UK260062

PATIENT
  Sex: Male

DRUGS (6)
  1. PANITUMUMAB [Suspect]
     Indication: COLORECTAL CANCER
     Route: 042
     Dates: start: 20070502
  2. IRINOTECAN [Suspect]
     Route: 065
  3. ONDANSETRON [Concomitant]
     Route: 042
  4. IMODIUM [Concomitant]
     Route: 048
  5. ZINNAT [Concomitant]
     Route: 048
     Dates: start: 20070510, end: 20070516
  6. IBUPROFEN [Concomitant]
     Route: 048
     Dates: start: 20070718

REACTIONS (2)
  - DEHYDRATION [None]
  - DIARRHOEA [None]
